FAERS Safety Report 10551507 (Version 7)
Quarter: 2015Q3

REPORT INFORMATION
  Report Type: Spontaneous
  Country: US (occurrence: US)
  Receive Date: 20141029
  Receipt Date: 20150908
  Transmission Date: 20151125
  Serious: Yes (Death, Hospitalization, Other)
  Sender: FDA-Public Use
  Company Number: US-PFIZER INC-2014278522

PATIENT
  Age: 89 Year
  Sex: Female
  Weight: 60 kg

DRUGS (9)
  1. VITAMIN D3 [Concomitant]
     Active Substance: CHOLECALCIFEROL
     Dosage: 1 DF, UNK (2000)
  2. WARFARIN [Concomitant]
     Active Substance: WARFARIN
     Indication: CEREBROVASCULAR ACCIDENT PROPHYLAXIS
     Dosage: 1 DF, UNK
  3. DIGOXIN. [Concomitant]
     Active Substance: DIGOXIN
     Indication: CARDIAC DISORDER
     Dosage: 125 MCG, UNK
  4. SPIRIVA [Concomitant]
     Active Substance: TIOTROPIUM BROMIDE MONOHYDRATE
     Indication: PULMONARY HYPERTENSION
     Dosage: UNK, DAILY
  5. AMITRIPTYLINE [Concomitant]
     Active Substance: AMITRIPTYLINE
     Indication: SLEEP DISORDER
     Dosage: 10 MG, UNK
     Dates: start: 20140910
  6. AMITRIPTYLINE [Concomitant]
     Active Substance: AMITRIPTYLINE
     Indication: ANXIETY
  7. REVATIO [Suspect]
     Active Substance: SILDENAFIL CITRATE
     Indication: PULMONARY HYPERTENSION
     Dosage: TWO PILLS 20MG EACH, 3 TIMES PER DAY
     Route: 048
     Dates: start: 20120508, end: 20150806
  8. METOPROLOL [Concomitant]
     Active Substance: METOPROLOL
     Indication: CARDIAC DISORDER
     Dosage: 50MG, 1-2X
  9. OPSUMIT [Concomitant]
     Active Substance: MACITENTAN
     Dosage: 10 MG, 1X/DAY
     Dates: start: 2015, end: 20150805

REACTIONS (3)
  - Epistaxis [Recovered/Resolved]
  - Intentional product misuse [Recovered/Resolved]
  - Aspiration [Fatal]

NARRATIVE: CASE EVENT DATE: 2015
